FAERS Safety Report 23087485 (Version 1)
Quarter: 2023Q4

REPORT INFORMATION
  Report Type: Report from Study
  Country: US (occurrence: US)
  Receive Date: 20231020
  Receipt Date: 20231020
  Transmission Date: 20240110
  Serious: Yes (Hospitalization)
  Sender: FDA-Public Use
  Company Number: US-ABBVIE-5457767

PATIENT
  Sex: Female

DRUGS (1)
  1. RINVOQ [Suspect]
     Active Substance: UPADACITINIB
     Indication: Psoriatic arthropathy
     Dosage: STRENGTH 15 MILLIGRAM ER
     Route: 048
     Dates: start: 20230819, end: 202310

REACTIONS (6)
  - Head injury [Unknown]
  - Fall [Unknown]
  - Eye swelling [Unknown]
  - Generalised oedema [Unknown]
  - Psoriatic arthropathy [Unknown]
  - Confusional state [Unknown]

NARRATIVE: CASE EVENT DATE: 20230101
